FAERS Safety Report 18826496 (Version 1)
Quarter: 2021Q1

REPORT INFORMATION
  Report Type: Spontaneous
  Country: DE (occurrence: DE)
  Receive Date: 20210202
  Receipt Date: 20210202
  Transmission Date: 20210419
  Serious: Yes (Life-Threatening)
  Sender: FDA-Public Use
  Company Number: DE-TEVA-2021-DE-1874191

PATIENT
  Age: 63 Year
  Sex: Male
  Weight: 64 kg

DRUGS (4)
  1. ESOMEPRAZOL TAD 20 MG BEI SODBRENNEN MAGENSAFTRESISTENTE HARTKAPSELN [Suspect]
     Active Substance: ESOMEPRAZOLE
     Indication: GASTRITIS PROPHYLAXIS
     Dosage: ROUTE OF ADMINISTRATION : BY PROBE , 20 MG
     Route: 051
     Dates: start: 20200708, end: 20200916
  2. ESOMEPRAZOL TAD 20 MG BEI SODBRENNEN MAGENSAFTRESISTENTE HARTKAPSELN [Suspect]
     Active Substance: ESOMEPRAZOLE
     Indication: GASTRIC PH DECREASED
  3. OMEPRAZOL?RATIOPHARM NT 20 MG MAGENSAFTR.HARTKAPS [Suspect]
     Active Substance: OMEPRAZOLE
     Indication: GASTRIC PH DECREASED
  4. OMEPRAZOL?RATIOPHARM NT 20 MG MAGENSAFTR.HARTKAPS [Suspect]
     Active Substance: OMEPRAZOLE
     Indication: GASTRITIS PROPHYLAXIS
     Dosage: ROUTE OF ADMINISTRATION : BY PROBE , 20 MG
     Route: 051
     Dates: start: 20200706, end: 20200708

REACTIONS (8)
  - Dermatitis allergic [Recovering/Resolving]
  - Wound [Recovering/Resolving]
  - Pain of skin [Recovering/Resolving]
  - Emotional distress [Recovered/Resolved with Sequelae]
  - Dermatitis [Recovering/Resolving]
  - Product substitution issue [Unknown]
  - Device occlusion [Unknown]
  - Product quality issue [Unknown]

NARRATIVE: CASE EVENT DATE: 20200706
